FAERS Safety Report 13130761 (Version 2)
Quarter: 2017Q1

REPORT INFORMATION
  Report Type: Spontaneous
  Country: US (occurrence: US)
  Receive Date: 20170119
  Receipt Date: 20170124
  Transmission Date: 20170428
  Serious: Yes (Other)
  Sender: FDA-Public Use
  Company Number: US-RECKITT BENCKISER HEALTHCARE INT LIMITED-RB-80911-2017

PATIENT
  Age: 74 Year
  Sex: Male

DRUGS (1)
  1. CEPACOL EXTRA STRENGTH SORE THROAT HONEY LEMON [Suspect]
     Active Substance: BENZOCAINE\MENTHOL
     Indication: PRODUCT USED FOR UNKNOWN INDICATION
     Dosage: 1 DF, SINGLE
     Route: 065
     Dates: start: 201701, end: 201701

REACTIONS (4)
  - Dysgeusia [Unknown]
  - Palpitations [Unknown]
  - Blood glucose increased [Recovered/Resolved]
  - Dyspnoea [Unknown]

NARRATIVE: CASE EVENT DATE: 201701
